FAERS Safety Report 6430388-1 (Version None)
Quarter: 2009Q4

REPORT INFORMATION
  Report Type: 
  Country: None (occurrence: None)
  Receive Date: 20091106
  Receipt Date: 20091026
  Transmission Date: 20100525
  Serious: Yes (Other)
  Sender: FDA-Public Use
  Company Number: KR-PFIZER INC-2009289398

PATIENT

DRUGS (1)
  1. SUTENE [Suspect]
     Route: 048

REACTIONS (1)
  - PNEUMONIA [None]
